FAERS Safety Report 24141804 (Version 1)
Quarter: 2024Q3

REPORT INFORMATION
  Report Type: Spontaneous
  Country: GB (occurrence: GB)
  Receive Date: 20240726
  Receipt Date: 20240726
  Transmission Date: 20241016
  Serious: Yes (Other)
  Sender: JOHNSON AND JOHNSON
  Company Number: GB-JNJFOC-20240767289

PATIENT
  Age: 62 Year
  Sex: Female

DRUGS (4)
  1. DARATUMUMAB [Suspect]
     Active Substance: DARATUMUMAB
     Indication: Paraproteinaemia
     Route: 065
  2. DARATUMUMAB [Suspect]
     Active Substance: DARATUMUMAB
     Indication: Primary amyloidosis
  3. DEXAMETHASONE [Suspect]
     Active Substance: DEXAMETHASONE
     Indication: Paraproteinaemia
     Route: 065
  4. DEXAMETHASONE [Suspect]
     Active Substance: DEXAMETHASONE
     Indication: Primary amyloidosis

REACTIONS (4)
  - Hypogammaglobulinaemia [Unknown]
  - Streptococcal infection [Unknown]
  - Urinary tract infection [Unknown]
  - Off label use [Unknown]
